FAERS Safety Report 7032158-2 (Version None)
Quarter: 2010Q4

REPORT INFORMATION
  Report Type: 
  Country: None (occurrence: None)
  Receive Date: 20101007
  Receipt Date: 20091104
  Transmission Date: 20110411
  Serious: Yes (Hospitalization)
  Sender: FDA-Public Use
  Company Number: FR-BRISTOL-MYERS SQUIBB COMPANY-14734859

PATIENT
  Age: 60 Year
  Sex: Male
  Weight: 74 kg

DRUGS (5)
  1. CETUXIMAB [Suspect]
     Indication: RECTAL CANCER
     Dosage: RECENT INF:27JUL2009; WITHHELD ON 03AUG2009
     Route: 042
     Dates: start: 20090709
  2. CISPLATIN [Suspect]
     Indication: RECTAL CANCER
     Route: 042
     Dates: start: 20090720
  3. FLUOROURACIL [Suspect]
     Indication: RECTAL CANCER
     Dosage: RECENT INF:23JUL2009
     Route: 042
     Dates: start: 20090720
  4. RADIOTHERAPY [Suspect]
     Indication: RECTAL CANCER
     Dosage: 1 DF = 1.8 GY; RECENT INF:04AUG2009
     Dates: start: 20090720
  5. VALACYCLOVIR HYDROCHLORIDE [Concomitant]
     Indication: STOMATITIS
     Route: 048
     Dates: start: 20090727

REACTIONS (2)
  - FEBRILE NEUTROPENIA [None]
  - THROMBOCYTOPENIA [None]
